FAERS Safety Report 10191425 (Version 1)
Quarter: 2014Q2

REPORT INFORMATION
  Report Type: Spontaneous
  Country: US (occurrence: US)
  Receive Date: 20140523
  Receipt Date: 20140523
  Transmission Date: 20141212
  Serious: No
  Sender: FDA-Public Use
  Company Number: US-PFIZER INC-2014137446

PATIENT
  Age: 66 Year
  Sex: Female

DRUGS (2)
  1. LYRICA [Suspect]
     Dosage: 100 MG, DAILY
     Route: 048
  2. LEVOXYL [Suspect]
     Dosage: 125 UG, DAILY
     Route: 048

REACTIONS (1)
  - Drug hypersensitivity [Unknown]
